FAERS Safety Report 20195860 (Version 3)
Quarter: 2022Q1

REPORT INFORMATION
  Report Type: Spontaneous
  Country: JP (occurrence: JP)
  Receive Date: 20211216
  Receipt Date: 20220127
  Transmission Date: 20220423
  Serious: Yes (Life-Threatening, Hospitalization)
  Sender: FDA-Public Use
  Company Number: JP-MOCHP-A20214647

PATIENT
  Sex: Female
  Weight: 2.964 kg

DRUGS (4)
  1. ESCITALOPRAM OXALATE [Suspect]
     Active Substance: ESCITALOPRAM OXALATE
     Indication: Exposure during pregnancy
     Dosage: 20 MG, QD
     Route: 064
     Dates: end: 20211102
  2. CHLORPROMAZINE [Suspect]
     Active Substance: CHLORPROMAZINE
     Indication: Exposure during pregnancy
     Dosage: 25 MG, QD
     Route: 064
     Dates: start: 20211031, end: 20211101
  3. ZOLPIDEM TARTRATE [Suspect]
     Active Substance: ZOLPIDEM TARTRATE
     Indication: Exposure during pregnancy
     Dosage: 5 MG, QD
     Route: 064
     Dates: start: 20211031, end: 20211101
  4. DAYVIGO [Concomitant]
     Active Substance: LEMBOREXANT
     Dosage: 5 MG, QD
     Route: 064
     Dates: end: 20211031

REACTIONS (3)
  - Drug withdrawal syndrome neonatal [Recovering/Resolving]
  - Pulmonary hypertension [Recovering/Resolving]
  - Pregnancy [Unknown]

NARRATIVE: CASE EVENT DATE: 20211102
